FAERS Safety Report 4952737-3 (Version None)
Quarter: 2006Q1

REPORT INFORMATION
  Report Type: 
  Country: None (occurrence: None)
  Receive Date: 20060320
  Receipt Date: 20060313
  Transmission Date: 20060701
  Serious: Yes (Other)
  Sender: FDA-Public Use
  Company Number: 2006035300

PATIENT
  Age: 75 Year
  Sex: Male
  Weight: 104.3273 kg

DRUGS (2)
  1. LIPITOR [Suspect]
     Indication: CARDIOVASCULAR DISORDER
     Dosage: (DAILY)
  2. ANALGESICS (ANALGESICS) [Concomitant]

REACTIONS (3)
  - ARTERIAL OCCLUSIVE DISEASE [None]
  - MYALGIA [None]
  - WRONG TECHNIQUE IN DRUG USAGE PROCESS [None]
